FAERS Safety Report 6631039-3 (Version None)
Quarter: 2010Q1

REPORT INFORMATION
  Report Type: 
  Country: None (occurrence: None)
  Receive Date: 20100309
  Receipt Date: 20100303
  Transmission Date: 20100710
  Serious: Yes (Death, Other)
  Sender: FDA-Public Use
  Company Number: 2010US000708

PATIENT
  Age: 32 Year
  Sex: Male

DRUGS (4)
  1. PROGRAF [Suspect]
     Indication: ACUTE GRAFT VERSUS HOST DISEASE IN SKIN
  2. ENBREL [Suspect]
     Indication: ACUTE GRAFT VERSUS HOST DISEASE IN SKIN
  3. MEDROL [Suspect]
     Indication: ACUTE GRAFT VERSUS HOST DISEASE IN SKIN
  4. VORICONAZOLE [Concomitant]

REACTIONS (4)
  - PULMONARY ARTERY ANEURYSM [None]
  - SEPSIS [None]
  - STAPHYLOCOCCAL BACTERAEMIA [None]
  - ZYGOMYCOSIS [None]
